FAERS Safety Report 19956493 (Version 2)
Quarter: 2021Q4

REPORT INFORMATION
  Report Type: Report from Study
  Country: US (occurrence: US)
  Receive Date: 20211014
  Receipt Date: 20211111
  Transmission Date: 20220303
  Serious: No
  Sender: FDA-Public Use
  Company Number: US-KYOWAKIRIN-2021BKK017035

PATIENT

DRUGS (1)
  1. CRYSVITA [Suspect]
     Active Substance: BUROSUMAB-TWZA
     Indication: Hereditary hypophosphataemic rickets
     Dosage: 60 MG, ONCE EVERY 14 DAYS
     Route: 058
     Dates: start: 20180803

REACTIONS (3)
  - Somnolence [Unknown]
  - Fatigue [Unknown]
  - Asthenia [Unknown]
